FAERS Safety Report 5381789-4 (Version None)
Quarter: 2007Q3

REPORT INFORMATION
  Report Type: 
  Country: None (occurrence: None)
  Receive Date: 20070705
  Receipt Date: 20070705
  Transmission Date: 20080115
  Serious: Yes (Life-Threatening, Hospitalization)
  Sender: FDA-Public Use
  Company Number: None

PATIENT
  Age: 13 Year
  Sex: Female
  Weight: 72.5755 kg

DRUGS (3)
  1. SERTALINE 50 MG ACTAVIS/PUREPAC [Suspect]
     Indication: IMPULSE-CONTROL DISORDER
     Dosage: 75 MG DAILY PO
     Route: 048
     Dates: start: 20061106, end: 20070315
  2. CLONIDINE [Concomitant]
  3. YASMIN [Concomitant]

REACTIONS (1)
  - SUICIDE ATTEMPT [None]
